FAERS Safety Report 23256816 (Version 1)
Quarter: 2023Q4

REPORT INFORMATION
  Report Type: Spontaneous
  Country: US (occurrence: US)
  Receive Date: 20231204
  Receipt Date: 20231204
  Transmission Date: 20240109
  Serious: No
  Sender: FDA-Public Use
  Company Number: US-PADAGIS-2023PAD01675

PATIENT

DRUGS (2)
  1. GYNAZOLE-1 [Suspect]
     Active Substance: BUTOCONAZOLE NITRATE
     Indication: Vulvovaginal mycotic infection
     Dosage: UNK
     Route: 065
     Dates: start: 202310
  2. DIFLUCAN [Suspect]
     Active Substance: FLUCONAZOLE
     Indication: Vulvovaginal mycotic infection
     Dosage: UNK
     Route: 065

REACTIONS (2)
  - Disease recurrence [Unknown]
  - Drug ineffective [Unknown]

NARRATIVE: CASE EVENT DATE: 20231001
